FAERS Safety Report 7081587-X (Version None)
Quarter: 2010Q4

REPORT INFORMATION
  Report Type: 
  Country: None (occurrence: None)
  Receive Date: 20101103
  Receipt Date: 20101015
  Transmission Date: 20110411
  Serious: Yes (Hospitalization)
  Sender: FDA-Public Use
  Company Number: DE-AMGEN-DEUCT2010000554

PATIENT

DRUGS (4)
  1. ENBREL [Suspect]
     Indication: PSORIATIC ARTHROPATHY
     Dosage: 50 MG, 2 TIMES/WK
     Route: 058
     Dates: start: 20100602, end: 20100101
  2. ENBREL [Suspect]
     Dosage: UNK
  3. RAMIPRIL [Concomitant]
  4. METOPROLOL [Concomitant]

REACTIONS (1)
  - BILIARY COLIC [None]
